FAERS Safety Report 4864460-4 (Version None)
Quarter: 2005Q4

REPORT INFORMATION
  Report Type: 
  Country: None (occurrence: None)
  Receive Date: 20051222
  Receipt Date: 20051215
  Transmission Date: 20060501
  Serious: Yes (Hospitalization, Other)
  Sender: FDA-Public Use
  Company Number: UA-BRISTOL-MYERS SQUIBB COMPANY-13219233

PATIENT
  Age: 56 Year
  Sex: Female

DRUGS (3)
  1. CISPLATIN [Suspect]
     Indication: GASTRIC CANCER
     Route: 042
     Dates: start: 20051115
  2. CISPLATIN [Suspect]
     Route: 042
     Dates: start: 20051115
  3. FLUOROURACIL [Suspect]
     Route: 042
     Dates: start: 20051115

REACTIONS (2)
  - NEPHRITIS [None]
  - NEUTROPENIA [None]
